FAERS Safety Report 9447425 (Version 1)
Quarter: 2013Q3

REPORT INFORMATION
  Report Type: Spontaneous
  Country: DE (occurrence: None)
  Receive Date: 20130805
  Receipt Date: 20130805
  Transmission Date: 20140515
  Serious: Yes (Life-Threatening, Hospitalization)
  Sender: FDA-Public Use
  Company Number: IMP_06759_2013

PATIENT
  Sex: 0

DRUGS (1)
  1. CARBIDOPA-LEVODOPA-B [Suspect]
     Dosage: VIA A JEJUNAL TENSION PERCUTANEOUS ENDOSCOPIC GASTROMY TUBE

REACTIONS (1)
  - Large intestine perforation [None]
